FAERS Safety Report 6868719-0 (Version None)
Quarter: 2010Q3

REPORT INFORMATION
  Report Type: 
  Country: None (occurrence: None)
  Receive Date: 20100722
  Receipt Date: 20080613
  Transmission Date: 20110219
  Serious: No
  Sender: FDA-Public Use
  Company Number: US-PFIZER INC-2008050150

PATIENT
  Age: 57 Year
  Sex: Female
  Weight: 62.7 kg

DRUGS (2)
  1. CHANTIX [Suspect]
     Indication: SMOKING CESSATION THERAPY
     Route: 048
     Dates: start: 20080604
  2. VITAMINS [Concomitant]

REACTIONS (4)
  - DIZZINESS [None]
  - ERYTHEMA [None]
  - MUSCLE TWITCHING [None]
  - RASH [None]
